FAERS Safety Report 24323102 (Version 4)
Quarter: 2024Q4

REPORT INFORMATION
  Report Type: Spontaneous
  Country: US (occurrence: US)
  Receive Date: 20240916
  Receipt Date: 20241208
  Transmission Date: 20250115
  Serious: Yes (Other)
  Sender: BAYER HEALTHCARE PHARMACEUTICALS INC.
  Company Number: US-BAYER-2024A130531

PATIENT
  Age: 38 Year
  Sex: Male
  Weight: 68.027 kg

DRUGS (17)
  1. KOVALTRY [Suspect]
     Active Substance: ANTIHEMOPHILIC FACTOR, HUMAN RECOMBINANT
     Indication: Factor VIII deficiency
     Dosage: INFUSE ~ 3000 UNITS (+/-10%) INTRAVENOUSLY THREE TIMES A WEEK FOR PROPHYLAXIS, AND 3000 UNITS (+/- 1
     Route: 042
  2. KOVALTRY [Suspect]
     Active Substance: ANTIHEMOPHILIC FACTOR, HUMAN RECOMBINANT
     Indication: Factor VIII deficiency
     Dosage: UNK
  3. KOVALTRY [Suspect]
     Active Substance: ANTIHEMOPHILIC FACTOR, HUMAN RECOMBINANT
     Indication: Factor VIII deficiency
     Dosage: UNK
  4. KOVALTRY [Suspect]
     Active Substance: ANTIHEMOPHILIC FACTOR, HUMAN RECOMBINANT
     Indication: Factor VIII deficiency
     Dosage: UNK
  5. KOVALTRY [Suspect]
     Active Substance: ANTIHEMOPHILIC FACTOR, HUMAN RECOMBINANT
     Indication: Factor VIII deficiency
     Dosage: 6 DF, TO TREAT R/ L ELBOW BLEED
  6. KOVALTRY [Suspect]
     Active Substance: ANTIHEMOPHILIC FACTOR, HUMAN RECOMBINANT
     Indication: Factor VIII deficiency
     Dosage: KOVALTRY 1000 UNITS/INFUSE 3000 UNITS/TIW FOR PROPHYLAXIS/PRN FOR BLEED
     Route: 042
  7. KOVALTRY [Suspect]
     Active Substance: ANTIHEMOPHILIC FACTOR, HUMAN RECOMBINANT
     Indication: Factor VIII deficiency
     Dosage: KOVALTRY 2000 UNITS/INFUSE 3000 UNITS/TIW FOR PROPHYLAXIS/PRN FOR BLEED
     Route: 042
  8. KOVALTRY [Suspect]
     Active Substance: ANTIHEMOPHILIC FACTOR, HUMAN RECOMBINANT
     Indication: Factor VIII deficiency
     Dosage: KOVALTRY 3000 UNITS/INFUSE 3000 UNITS/TIW FOR PROPHYLAXIS/PRN FOR BLEED
     Route: 042
  9. KOVALTRY [Suspect]
     Active Substance: ANTIHEMOPHILIC FACTOR, HUMAN RECOMBINANT
     Indication: Factor VIII deficiency
     Dosage: 8 DF, TO TREAT BOTH ELBOW BLEED
     Route: 042
  10. KOVALTRY [Suspect]
     Active Substance: ANTIHEMOPHILIC FACTOR, HUMAN RECOMBINANT
     Indication: Factor VIII deficiency
     Dosage: 5 DF, TO TREAT L ELBOW BLEED
     Route: 042
  11. KOVALTRY [Suspect]
     Active Substance: ANTIHEMOPHILIC FACTOR, HUMAN RECOMBINANT
     Indication: Factor VIII deficiency
     Dosage: 5 DF, TO TREAT R ELBOW BLEED
     Route: 042
  12. VITAMINS [Concomitant]
     Active Substance: VITAMINS
  13. AMLODIPINE BESYLATE [Concomitant]
     Active Substance: AMLODIPINE BESYLATE
  14. MONTELUKAST SODIUM [Concomitant]
     Active Substance: MONTELUKAST\MONTELUKAST SODIUM
  15. DOXYCYCLINE HYCLATE [Concomitant]
     Active Substance: DOXYCYCLINE HYCLATE
  16. Metoprolol tartrate accord [Concomitant]
  17. PREGABALIN [Concomitant]
     Active Substance: PREGABALIN

REACTIONS (4)
  - Haemarthrosis [Not Recovered/Not Resolved]
  - Haemarthrosis [None]
  - Haemarthrosis [Not Recovered/Not Resolved]
  - Haemarthrosis [Not Recovered/Not Resolved]

NARRATIVE: CASE EVENT DATE: 20240801
